FAERS Safety Report 23385016 (Version 5)
Quarter: 2024Q2

REPORT INFORMATION
  Report Type: Report from Study
  Country: US (occurrence: US)
  Receive Date: 20240109
  Receipt Date: 20240621
  Transmission Date: 20240716
  Serious: No
  Sender: FDA-Public Use
  Company Number: US-ACADIA PHARMACEUTICALS INC.-ACA-2023-TRF-005826

PATIENT
  Age: 19 Year
  Sex: Female
  Weight: 99 kg

DRUGS (19)
  1. DAYBUE [Suspect]
     Active Substance: TROFINETIDE
     Indication: Rett syndrome
     Dosage: 30 MILLILITER, BID
     Route: 048
     Dates: start: 20231110
  2. DAYBUE [Suspect]
     Active Substance: TROFINETIDE
     Dosage: 60 MILLILITER, BID
     Route: 048
  3. DAYBUE [Suspect]
     Active Substance: TROFINETIDE
     Dosage: 20 MILLILITER
     Route: 048
     Dates: start: 20240123
  4. DAYBUE [Suspect]
     Active Substance: TROFINETIDE
     Dosage: 30 MILLILITER, BID
     Route: 048
  5. DAYBUE [Suspect]
     Active Substance: TROFINETIDE
     Dosage: 40 MILLILITER, BID
     Route: 048
  6. DAYBUE [Suspect]
     Active Substance: TROFINETIDE
     Dosage: 34 MILLILITER, BID
     Route: 048
  7. RIZATRIPTAN [Concomitant]
     Active Substance: RIZATRIPTAN
     Indication: Migraine
     Dosage: 10 MILLIGRAM, 1 TABLET ORALLY PRN
     Route: 048
  8. LAMICTAL ODT [Concomitant]
     Active Substance: LAMOTRIGINE
     Dosage: 25 MILLIGRAM TABLET, DISINTEGRATING 5 TABLETS ORALLY 2 TIMES A DAY
     Route: 048
  9. CONSTULOSE [Concomitant]
     Active Substance: LACTULOSE
     Dosage: 10G/ 15 ML SYRUP, 30 ML ORALLY TWICE A DAY
     Route: 048
  10. CETIRIZINE [Concomitant]
     Active Substance: CETIRIZINE HYDROCHLORIDE
     Dosage: 10 MILLIGRAM TABLET 1 TAB(S) ORALLY ONCE A DAY
     Route: 048
  11. FAMOTIDINE [Concomitant]
     Active Substance: FAMOTIDINE
     Dosage: 40 MG/ 5 ML POWDER FOR RECONSTITUTION 5 ML ORALLY ONCE A DAY (AT BEDTIME)
     Route: 048
  12. LAMOTRIGINE [Concomitant]
     Active Substance: LAMOTRIGINE
     Dosage: 25 MILLIGRAM 5 TABS ORALLY 2 TIMES A DAY
     Route: 048
  13. TYLENOL 8HR [Concomitant]
     Active Substance: ACETAMINOPHEN
     Dosage: PRN
     Route: 048
  14. DEPO-PROVERA [Concomitant]
     Active Substance: MEDROXYPROGESTERONE ACETATE
     Dosage: 40 MG/ ML SUSPENSION INTRAMUSCULARLY ONCE EVERY THREE MONTHS
     Route: 030
  15. CHILDRENS MOTRIN [Concomitant]
     Active Substance: IBUPROFEN
     Dosage: PRN
     Route: 048
  16. SERTRALINE [Concomitant]
     Active Substance: SERTRALINE HYDROCHLORIDE
     Dosage: 100 MILLIGRAM, 4 ML ONCE DAILY
     Route: 048
  17. CLONAZEPAM [Concomitant]
     Active Substance: CLONAZEPAM
     Indication: Seizure
     Dosage: 0.5 MG TABLET,1 TAB(S) ORALLY OF CHEEK SEIZURE}3 MIN, CLUSTER OF 2 OR}SEIZURE OR SEVERE ANXIETY, MDD
     Route: 048
  18. CLONAZEPAM [Concomitant]
     Active Substance: CLONAZEPAM
     Indication: Anxiety
  19. ONFI [Concomitant]
     Active Substance: CLOBAZAM
     Indication: Seizure
     Dosage: 2.5 MG/ML SUSPENSION 4 ML (DAW) ORALLY QHS AND 4 ML PRN SEIZURE}2MIN OR INCREASED MYOCLONAS (SEPERAT
     Route: 048

REACTIONS (9)
  - Faeces soft [Not Recovered/Not Resolved]
  - Constipation [Recovered/Resolved]
  - Underdose [Not Recovered/Not Resolved]
  - Influenza [Not Recovered/Not Resolved]
  - Prescribed underdose [Unknown]
  - Diarrhoea [Recovering/Resolving]
  - Diarrhoea [Recovered/Resolved]
  - Diarrhoea [Recovering/Resolving]
  - Diarrhoea [Recovering/Resolving]

NARRATIVE: CASE EVENT DATE: 20231110
